FAERS Safety Report 19502559 (Version 1)
Quarter: 2021Q3

REPORT INFORMATION
  Report Type: Spontaneous
  Country: NL (occurrence: NL)
  Receive Date: 20210707
  Receipt Date: 20210707
  Transmission Date: 20211014
  Serious: Yes (Disabling)
  Sender: FDA-Public Use
  Company Number: NL-TEVA-2021-NL-1930146

PATIENT
  Sex: Male
  Weight: 62 kg

DRUGS (3)
  1. PAROXETINE TABLET 20MG / BRAND NAME NOT SPECIFIED [Suspect]
     Active Substance: PAROXETINE
     Dosage: 1 FIRST 20MG TABLET, THEN 40MG TABLET. THEN TAPER OFF WITH SUSPENSION, THERAPY END DATE: ASKU, 20 MG
     Route: 065
     Dates: start: 201901
  2. PAROXETINE TABLET 20MG / BRAND NAME NOT SPECIFIED [Suspect]
     Active Substance: PAROXETINE
     Indication: ANXIETY
     Dosage: FIRST 20MG TABLET, THEN 40MG TABLET. THEN REDUCE WITH SUSPENSION, THERAPY END DATE: ASKU, 40 MG
     Route: 065
     Dates: start: 2019
  3. PAROXETINE TABLET 20MG / BRAND NAME NOT SPECIFIED [Suspect]
     Active Substance: PAROXETINE
     Dosage: 1 FIRST 20MG TABLET, THEN 40MG TABLET. THEN TAPER OFF WITH SUSPENSION, THERAPY START AND END DATE: A
     Route: 065

REACTIONS (6)
  - Weight increased [Recovered/Resolved]
  - Insomnia [Recovered/Resolved]
  - Paranoia [Recovering/Resolving]
  - Listless [Recovering/Resolving]
  - Aggression [Recovering/Resolving]
  - Depressed level of consciousness [Recovering/Resolving]
